FAERS Safety Report 24591484 (Version 1)
Quarter: 2024Q4

REPORT INFORMATION
  Report Type: Spontaneous
  Country: FR (occurrence: FR)
  Receive Date: 20241108
  Receipt Date: 20241108
  Transmission Date: 20250115
  Serious: Yes (Hospitalization, Other)
  Sender: AUROBINDO
  Company Number: FR-AFSSAPS-AVCN2024000787

PATIENT
  Age: 28 Year
  Sex: Male

DRUGS (5)
  1. ALPRAZOLAM [Suspect]
     Active Substance: ALPRAZOLAM
     Indication: Product used for unknown indication
     Dosage: 5 MILLIGRAM
     Route: 048
     Dates: start: 20241009, end: 20241009
  2. DIAZEPAM [Suspect]
     Active Substance: DIAZEPAM
     Indication: Product used for unknown indication
     Dosage: 100 MILLIGRAM
     Route: 048
     Dates: start: 20241009, end: 20241009
  3. PROPRANOLOL [Suspect]
     Active Substance: PROPRANOLOL HYDROCHLORIDE
     Indication: Product used for unknown indication
     Dosage: 2000 MILLIGRAM
     Route: 048
     Dates: start: 20241009, end: 20241009
  4. ZOPICLONE [Suspect]
     Active Substance: ZOPICLONE
     Indication: Product used for unknown indication
     Dosage: 420 MILLIGRAM
     Route: 048
     Dates: start: 20241009, end: 20241009
  5. COCAINE [Suspect]
     Active Substance: COCAINE
     Indication: Product used for unknown indication
     Dosage: UNK
     Route: 065

REACTIONS (11)
  - Suicidal ideation [Recovered/Resolved]
  - Drug abuse [Not Recovered/Not Resolved]
  - Toxicity to various agents [Recovered/Resolved]
  - Speech disorder [Recovered/Resolved]
  - Agitation [Recovered/Resolved]
  - Mydriasis [Recovered/Resolved]
  - Electrocardiogram abnormal [Recovered/Resolved]
  - Electrocardiogram T wave amplitude increased [Recovered/Resolved]
  - Ventricular dysfunction [Recovered/Resolved]
  - Hypotension [Recovered/Resolved]
  - Bradycardia [Recovered/Resolved]

NARRATIVE: CASE EVENT DATE: 20241009
